FAERS Safety Report 10018637 (Version 3)
Quarter: 2014Q2

REPORT INFORMATION
  Report Type: Spontaneous
  Country: US (occurrence: US)
  Receive Date: 20140318
  Receipt Date: 20140620
  Transmission Date: 20141212
  Serious: Yes (Death, Hospitalization)
  Sender: FDA-Public Use
  Company Number: US-INCYTE CORPORATION-2014IN000654

PATIENT
  Age: 86 Year
  Sex: Male
  Weight: 71.2 kg

DRUGS (12)
  1. JAKAFI [Suspect]
     Indication: MYELOFIBROSIS
     Dosage: 5 MG, BID
     Route: 048
     Dates: start: 20140205, end: 20140517
  2. POTASSIUM CHLORIDE [Concomitant]
  3. CEFDINIR [Concomitant]
  4. LIDOCAINE [Concomitant]
  5. LUMIGAN [Concomitant]
  6. RESTASIS [Concomitant]
  7. LOSARTAN [Concomitant]
  8. CELEBREX [Concomitant]
  9. ALLOPURINOL [Concomitant]
  10. LEVOTHYROXINE [Concomitant]
  11. METOPROLOL [Concomitant]
  12. OMEPRAZOLE [Concomitant]

REACTIONS (8)
  - Death [Fatal]
  - Diarrhoea [Not Recovered/Not Resolved]
  - Dehydration [Not Recovered/Not Resolved]
  - Abdominal distension [Not Recovered/Not Resolved]
  - Peripheral swelling [Not Recovered/Not Resolved]
  - Asthenia [Not Recovered/Not Resolved]
  - Renal failure acute [Unknown]
  - Cardiac failure acute [Unknown]
